FAERS Safety Report 9233055 (Version 1)
Quarter: 2013Q2

REPORT INFORMATION
  Report Type: Spontaneous
  Country: IT (occurrence: IT)
  Receive Date: 20130416
  Receipt Date: 20130416
  Transmission Date: 20140414
  Serious: Yes (Hospitalization, Other)
  Sender: FDA-Public Use
  Company Number: PHHY2013IT035036

PATIENT
  Age: 64 Year
  Sex: Male

DRUGS (2)
  1. MYFORTIC [Suspect]
     Dosage: 1440 MG, UNK
     Route: 048
     Dates: start: 20120710, end: 20130206
  2. MYFORTIC [Suspect]
     Dosage: UNK

REACTIONS (4)
  - Colitis [Recovered/Resolved]
  - Diarrhoea [Recovered/Resolved]
  - Renal failure [Recovered/Resolved]
  - Heart transplant rejection [Recovered/Resolved]
